FAERS Safety Report 9261575 (Version 1)
Quarter: 2013Q2

REPORT INFORMATION
  Report Type: Spontaneous
  Country: US (occurrence: US)
  Receive Date: 20130429
  Receipt Date: 20130429
  Transmission Date: 20140414
  Serious: Yes (Hospitalization)
  Sender: FDA-Public Use
  Company Number: US-NICOBRDEVP-2013-06943

PATIENT
  Age: 72 Year
  Sex: Female

DRUGS (1)
  1. TAMOXIFEN CITRATE (WATSON LABORATORIES) [Suspect]
     Indication: PRODUCT USED FOR UNKNOWN INDICATION
     Dosage: UNK
     Route: 048
     Dates: end: 2012

REACTIONS (5)
  - Pulmonary embolism [Unknown]
  - Pain in extremity [Unknown]
  - Local swelling [Unknown]
  - Dyspnoea [Unknown]
  - Pulmonary thrombosis [None]
